FAERS Safety Report 22129430 (Version 1)
Quarter: 2023Q1

REPORT INFORMATION
  Report Type: Spontaneous
  Country: CA (occurrence: CA)
  Receive Date: 20230323
  Receipt Date: 20230323
  Transmission Date: 20230417
  Serious: Yes (Death)
  Sender: FDA-Public Use
  Company Number: None

PATIENT
  Age: 71 Year
  Sex: Female

DRUGS (1)
  1. FLUOROURACIL [Suspect]
     Active Substance: FLUOROURACIL
     Indication: Colon cancer metastatic
     Dosage: FREQUENCY: CYCLICAL

REACTIONS (6)
  - Cardiac arrest [Fatal]
  - Cardiotoxicity [Fatal]
  - Malaise [Fatal]
  - Nausea [Fatal]
  - Pulmonary oedema [Fatal]
  - Vomiting [Fatal]
